FAERS Safety Report 7099479-9 (Version None)
Quarter: 2010Q4

REPORT INFORMATION
  Report Type: 
  Country: None (occurrence: None)
  Receive Date: 20101112
  Receipt Date: 20101103
  Transmission Date: 20110411
  Serious: Yes (Hospitalization, Disabling)
  Sender: FDA-Public Use
  Company Number: US-MERCK-0901USA02750

PATIENT
  Age: 59 Year
  Sex: Female
  Weight: 68 kg

DRUGS (5)
  1. FOSAMAX [Suspect]
     Indication: OSTEOPOROSIS
     Route: 048
     Dates: start: 20001201, end: 20070101
  2. FOSAMAX [Suspect]
     Indication: OSTEOPENIA
     Route: 048
     Dates: start: 20001201, end: 20070101
  3. CALCIUM (UNSPECIFIED) [Concomitant]
     Route: 065
  4. FOSAMAX PLUS D [Suspect]
     Indication: OSTEOPENIA
     Route: 048
     Dates: start: 20070830, end: 20080510
  5. HORMONES (UNSPECIFIED) [Concomitant]
     Route: 065
     Dates: start: 19930101, end: 20070901

REACTIONS (17)
  - BACTERIAL INFECTION [None]
  - BONE DENSITY DECREASED [None]
  - BONE FORMATION DECREASED [None]
  - FALL [None]
  - FEMUR FRACTURE [None]
  - HAEMATOMA [None]
  - HYPERCHOLESTEROLAEMIA [None]
  - INFLAMMATION [None]
  - LOW TURNOVER OSTEOPATHY [None]
  - LUMBAR SPINAL STENOSIS [None]
  - OEDEMA PERIPHERAL [None]
  - OSTEOARTHRITIS [None]
  - PERIPHERAL EMBOLISM [None]
  - SLEEP DISORDER [None]
  - SPINAL OSTEOARTHRITIS [None]
  - TENDERNESS [None]
  - VITAMIN D DEFICIENCY [None]
